FAERS Safety Report 9331221 (Version 2)
Quarter: 2013Q4

REPORT INFORMATION
  Report Type: Spontaneous
  Country: US (occurrence: US)
  Receive Date: 20130605
  Receipt Date: 20131030
  Transmission Date: 20140711
  Serious: Yes (Hospitalization)
  Sender: FDA-Public Use
  Company Number: US-B.I. PHARMACEUTICALS,INC./RIDGEFIELD-2013-BI-15777BP

PATIENT
  Sex: Male
  Weight: 73.48 kg

DRUGS (10)
  1. PRADAXA [Suspect]
     Indication: DEEP VEIN THROMBOSIS
     Dosage: 300 MG
     Dates: start: 20111013
  2. PRADAXA [Suspect]
     Dosage: 150 MG
     Dates: end: 20120210
  3. BENTYL [Concomitant]
  4. AMLODIPINE [Concomitant]
     Dosage: 10 MG
     Route: 048
  5. CARVEDILOL [Concomitant]
     Dosage: 25 MG
     Route: 048
  6. LISINOPRIL [Concomitant]
     Dosage: 10 MG
     Route: 048
  7. PAROXETINE [Concomitant]
     Dosage: 40 MG
     Route: 048
  8. TEMAZEPAM [Concomitant]
  9. GLYBURIDE [Concomitant]
     Dosage: 4 MG
     Route: 048
  10. LANTUS [Concomitant]
     Dosage: 20 U
     Route: 058

REACTIONS (5)
  - Diverticulum intestinal haemorrhagic [Recovered/Resolved]
  - Haemorrhagic anaemia [Unknown]
  - Syncope [Unknown]
  - Fall [Unknown]
  - Upper limb fracture [Unknown]
